FAERS Safety Report 15936692 (Version 1)
Quarter: 2019Q1

REPORT INFORMATION
  Report Type: Spontaneous
  Country: US (occurrence: US)
  Receive Date: 20190117
  Receipt Date: 20190117
  Transmission Date: 20190417
  Serious: No
  Sender: FDA-Public Use
  Company Number: None

PATIENT
  Age: 91 Year
  Sex: Male

DRUGS (1)
  1. PREDNISONE TAB 5MG [Suspect]
     Active Substance: PREDNISONE
     Route: 048
     Dates: start: 20180109

REACTIONS (1)
  - Urticaria [None]

NARRATIVE: CASE EVENT DATE: 20190117
